FAERS Safety Report 21216105 (Version 1)
Quarter: 2022Q3

REPORT INFORMATION
  Report Type: Spontaneous
  Country: US (occurrence: None)
  Receive Date: 20220815
  Receipt Date: 20220815
  Transmission Date: 20221027
  Serious: Yes (Hospitalization)
  Sender: FDA-Public Use
  Company Number: None

PATIENT
  Age: 60 Year
  Sex: Male
  Weight: 90.72 kg

DRUGS (1)
  1. INGREZZA [Suspect]
     Active Substance: VALBENAZINE
     Indication: Tardive dyskinesia
     Dates: start: 20220613, end: 20220703

REACTIONS (3)
  - Abnormal behaviour [None]
  - Somnambulism [None]
  - Memory impairment [None]

NARRATIVE: CASE EVENT DATE: 20220703
